FAERS Safety Report 8337902-X (Version None)
Quarter: 2012Q2

REPORT INFORMATION
  Report Type: 
  Country: None (occurrence: None)
  Receive Date: 20120504
  Receipt Date: 20120423
  Transmission Date: 20120825
  Serious: Yes (Hospitalization)
  Sender: FDA-Public Use
  Company Number: US-JNJFOC-20120410746

PATIENT
  Sex: Female

DRUGS (1)
  1. REMICADE [Suspect]
     Indication: PSORIATIC ARTHROPATHY
     Route: 042

REACTIONS (7)
  - SPINAL OPERATION [None]
  - COLITIS MICROSCOPIC [None]
  - BLOOD GLUCOSE INCREASED [None]
  - DEHYDRATION [None]
  - WHITE BLOOD CELL COUNT INCREASED [None]
  - WEIGHT DECREASED [None]
  - DIARRHOEA [None]
